FAERS Safety Report 18515072 (Version 2)
Quarter: 2021Q4

REPORT INFORMATION
  Report Type: Spontaneous
  Country: US (occurrence: US)
  Receive Date: 20201118
  Receipt Date: 20211129
  Transmission Date: 20220303
  Serious: No
  Sender: FDA-Public Use
  Company Number: US-UCBSA-2020027240

PATIENT

DRUGS (1)
  1. VIMPAT [Suspect]
     Active Substance: LACOSAMIDE
     Indication: Product used for unknown indication
     Dosage: ABOVE THE RECOMMENDED MAXIMUM DOSE OF 400MG PER DAY

REACTIONS (2)
  - Incorrect dose administered [Unknown]
  - Overdose [Unknown]
